FAERS Safety Report 6122428-4 (Version None)
Quarter: 2009Q1

REPORT INFORMATION
  Report Type: 
  Country: None (occurrence: None)
  Receive Date: 20090318
  Receipt Date: 20090306
  Transmission Date: 20090719
  Serious: Yes (Life-Threatening, Hospitalization)
  Sender: FDA-Public Use
  Company Number: US-BRISTOL-MYERS SQUIBB COMPANY-14525182

PATIENT
  Age: 59 Year
  Sex: Male

DRUGS (3)
  1. DEFINITY [Suspect]
     Indication: ECHOCARDIOGRAM
     Dates: start: 20071204, end: 20071204
  2. DEFINITY [Suspect]
     Indication: CORONARY ARTERY DISEASE
     Dates: start: 20071204, end: 20071204
  3. DEFINITY [Suspect]
     Indication: SYNCOPE
     Dates: start: 20071204, end: 20071204

REACTIONS (5)
  - CARDIAC ARREST [None]
  - FLUSHING [None]
  - RESPIRATORY ARREST [None]
  - SHOCK [None]
  - SINUS TACHYCARDIA [None]
